FAERS Safety Report 10909155 (Version 1)
Quarter: 2015Q1

REPORT INFORMATION
  Report Type: Spontaneous
  Country: US (occurrence: US)
  Receive Date: 20150312
  Receipt Date: 20150312
  Transmission Date: 20150721
  Serious: No
  Sender: FDA-Public Use
  Company Number: US-SA-2014SA028603

PATIENT
  Age: 66 Year
  Sex: Male
  Weight: 136 kg

DRUGS (1)
  1. NASACORT ALLERGY 24HR [Suspect]
     Active Substance: TRIAMCINOLONE ACETONIDE
     Indication: NASAL CONGESTION
     Dosage: TAKEN FROM: 1 WEEK AGO
     Route: 065
     Dates: start: 20140215, end: 20140219

REACTIONS (1)
  - Drug ineffective [Unknown]
